FAERS Safety Report 6301905-7 (Version None)
Quarter: 2009Q3

REPORT INFORMATION
  Report Type: 
  Country: None (occurrence: None)
  Receive Date: 20090807
  Receipt Date: 20090803
  Transmission Date: 20100115
  Serious: Yes (Death, Other)
  Sender: FDA-Public Use
  Company Number: IL-CELGENEUS-082-50794-09071147

PATIENT
  Sex: Male

DRUGS (3)
  1. VIDAZA [Suspect]
     Route: 058
     Dates: start: 20090712
  2. VIDAZA [Suspect]
     Route: 051
     Dates: start: 20090714, end: 20090714
  3. VIDAZA [Suspect]
     Route: 058
     Dates: start: 20090715

REACTIONS (6)
  - DEATH [None]
  - DYSPNOEA [None]
  - INJECTION SITE REACTION [None]
  - MEDICATION ERROR [None]
  - PLATELET COUNT DECREASED [None]
  - RASH [None]
